FAERS Safety Report 4941275-X (Version None)
Quarter: 2006Q1

REPORT INFORMATION
  Report Type: 
  Country: None (occurrence: None)
  Receive Date: 20060313
  Receipt Date: 20050902
  Transmission Date: 20060701
  Serious: Yes (Hospitalization)
  Sender: FDA-Public Use
  Company Number: US-MERCK-0509USA00703

PATIENT
  Age: 36 Year
  Sex: Male

DRUGS (7)
  1. VIOXX [Suspect]
     Route: 048
  2. NITROGLYCERIN [Concomitant]
     Route: 061
  3. PLAVIX [Concomitant]
     Route: 065
  4. ASPIRIN [Concomitant]
     Route: 065
  5. AMBIEN [Suspect]
     Indication: INSOMNIA
     Route: 048
  6. AMBIEN [Suspect]
     Route: 048
  7. ANTIMICROBIAL (UNSPECIFIED) [Concomitant]
     Route: 065

REACTIONS (14)
  - ANXIETY [None]
  - CEREBRAL INFARCTION [None]
  - CONGESTIVE CARDIOMYOPATHY [None]
  - CORONARY ARTERY DISEASE [None]
  - DEHYDRATION [None]
  - DIZZINESS [None]
  - DYSARTHRIA [None]
  - FALL [None]
  - GLIOMA [None]
  - INSOMNIA [None]
  - MOUTH INJURY [None]
  - NEOPLASM [None]
  - PROSTATITIS [None]
  - SINUS BRADYCARDIA [None]
